FAERS Safety Report 14815697 (Version 1)
Quarter: 2018Q2

REPORT INFORMATION
  Report Type: Spontaneous
  Country: US (occurrence: US)
  Receive Date: 20180417
  Receipt Date: 20180417
  Transmission Date: 20180711
  Serious: Yes (Disabling, Other)
  Sender: FDA-Public Use
  Company Number: None

PATIENT
  Age: 82 Year
  Weight: 46.35 kg

DRUGS (2)
  1. LEVOFLOXACIN. [Suspect]
     Active Substance: LEVOFLOXACIN
     Indication: BRONCHITIS
     Dosage: ?          QUANTITY:7 TABLET(S);?
     Route: 048
     Dates: start: 20180411, end: 20180413
  2. MEDROL PACK [Concomitant]

REACTIONS (5)
  - Gait disturbance [None]
  - Arthropathy [None]
  - Myalgia [None]
  - Tendonitis [None]
  - Gait inability [None]

NARRATIVE: CASE EVENT DATE: 20180411
